FAERS Safety Report 9376541 (Version 1)
Quarter: 2013Q2

REPORT INFORMATION
  Report Type: Spontaneous
  Country: US (occurrence: None)
  Receive Date: 20130628
  Receipt Date: 20130628
  Transmission Date: 20140414
  Serious: Yes (Other)
  Sender: FDA-Public Use
  Company Number: None

PATIENT
  Age: 57 Year
  Sex: Female

DRUGS (3)
  1. FORTEO [Suspect]
     Indication: OSTEOPOROSIS
     Route: 058
  2. VIRASTOP [Concomitant]
  3. VITAMIN D [Concomitant]

REACTIONS (2)
  - Pancreatic cyst [None]
  - Nephrolithiasis [None]
